FAERS Safety Report 5569920-9 (Version None)
Quarter: 2007Q4

REPORT INFORMATION
  Report Type: 
  Country: None (occurrence: None)
  Receive Date: 20071218
  Receipt Date: 20071129
  Transmission Date: 20080405
  Serious: Yes (Other)
  Sender: FDA-Public Use
  Company Number: ACO_00410_2007

PATIENT
  Sex: Female

DRUGS (2)
  1. SIRDALUD (SIRDALUD - TIZANIDINE HYDROCHLORIDE) [Suspect]
     Indication: BACK PAIN
     Dosage: 1 DF 1X ORAL
     Route: 048
     Dates: start: 20071102, end: 20071102
  2. COUMADIN [Concomitant]

REACTIONS (2)
  - MALAISE [None]
  - THROAT TIGHTNESS [None]
